FAERS Safety Report 18980611 (Version 1)
Quarter: 2021Q1

REPORT INFORMATION
  Report Type: Spontaneous
  Country: US (occurrence: US)
  Receive Date: 20210307
  Receipt Date: 20210307
  Transmission Date: 20210420
  Serious: Yes (Other)
  Sender: FDA-Public Use
  Company Number: None

PATIENT
  Age: 56 Year
  Sex: Male

DRUGS (12)
  1. XIFAXAN [Concomitant]
     Active Substance: RIFAXIMIN
     Dates: start: 20200213
  2. XARELTO [Concomitant]
     Active Substance: RIVAROXABAN
     Dates: start: 20200218
  3. SPIRONOLACTONE. [Concomitant]
     Active Substance: SPIRONOLACTONE
     Dates: start: 20200316
  4. APREPITANT. [Concomitant]
     Active Substance: APREPITANT
     Dates: start: 20200817
  5. FUROSEMIDE. [Concomitant]
     Active Substance: FUROSEMIDE
     Dates: start: 20200408
  6. REYVOW [Suspect]
     Active Substance: LASMIDITAN
     Indication: MIGRAINE
     Route: 049
     Dates: start: 20201112, end: 20210303
  7. NORTRIPTYLINE [Concomitant]
     Active Substance: NORTRIPTYLINE
     Dates: start: 20201110
  8. NADOLOL. [Concomitant]
     Active Substance: NADOLOL
     Dates: start: 20200817
  9. PANTOPRAZONE [Concomitant]
     Dates: start: 20210107
  10. MIRTAZEPINE [Concomitant]
     Active Substance: MIRTAZAPINE
     Dates: start: 20210216
  11. EMGALITY [Concomitant]
     Active Substance: GALCANEZUMAB-GNLM
     Dates: start: 20200518
  12. CREON [Concomitant]
     Active Substance: PANCRELIPASE AMYLASE\PANCRELIPASE LIPASE\PANCRELIPASE PROTEASE
     Dates: start: 20200720

REACTIONS (1)
  - Serotonin syndrome [None]

NARRATIVE: CASE EVENT DATE: 20210303
